FAERS Safety Report 14106066 (Version 2)
Quarter: 2018Q1

REPORT INFORMATION
  Report Type: Spontaneous
  Country: US (occurrence: US)
  Receive Date: 20171019
  Receipt Date: 20180220
  Transmission Date: 20180508
  Serious: No
  Sender: FDA-Public Use
  Company Number: US-CELGENEUS-USA-20171005096

PATIENT
  Sex: Male
  Weight: 74 kg

DRUGS (1)
  1. POMALYST [Suspect]
     Active Substance: POMALIDOMIDE
     Indication: PLASMA CELL MYELOMA
     Dosage: 4 MILLIGRAM
     Route: 048
     Dates: start: 20170817

REACTIONS (5)
  - Pain [Recovering/Resolving]
  - Constipation [Unknown]
  - Diarrhoea [Not Recovered/Not Resolved]
  - Muscle spasms [Unknown]
  - Weight increased [Unknown]

NARRATIVE: CASE EVENT DATE: 2017
